FAERS Safety Report 9174028 (Version 2)
Quarter: 2013Q2

REPORT INFORMATION
  Report Type: Spontaneous
  Country: US (occurrence: US)
  Receive Date: 20130320
  Receipt Date: 20130626
  Transmission Date: 20140414
  Serious: Yes (Other)
  Sender: FDA-Public Use
  Company Number: US-PFIZER INC-2013089399

PATIENT
  Sex: Female

DRUGS (2)
  1. CHANTIX [Suspect]
     Indication: SMOKING CESSATION THERAPY
     Dosage: 0.5 MG, UNK
     Dates: start: 200910, end: 2009
  2. CHANTIX [Suspect]
     Dosage: 0.125 (1/4 OF 0.5MG), AT BEDTIME
     Dates: start: 2009, end: 201004

REACTIONS (5)
  - Suicidal ideation [Unknown]
  - Depression [Unknown]
  - Nightmare [Unknown]
  - Insomnia [Not Recovered/Not Resolved]
  - Sleep disorder [Not Recovered/Not Resolved]
